FAERS Safety Report 19098739 (Version 5)
Quarter: 2022Q1

REPORT INFORMATION
  Report Type: Report from Study
  Country: US (occurrence: US)
  Receive Date: 20210406
  Receipt Date: 20220311
  Transmission Date: 20220423
  Serious: Yes (Hospitalization)
  Sender: FDA-Public Use
  Company Number: US-NOVARTISTESTPH-NVSC2021US074550

PATIENT
  Sex: Female
  Weight: 54.422 kg

DRUGS (3)
  1. TREPROSTINIL [Suspect]
     Active Substance: TREPROSTINIL
     Indication: Pulmonary arterial hypertension
     Dosage: 75 NG/KG/MIN, CONT (STRENGTH: 1 MG/ML)
     Route: 042
     Dates: start: 20190507
  2. TREPROSTINIL [Suspect]
     Active Substance: TREPROSTINIL
     Dosage: 75 NG/KG/MIN, CONT (STRENGTH: 2.5 MG/ML)
     Route: 042
     Dates: start: 20190507
  3. SILDENAFIL CITRATE [Concomitant]
     Active Substance: SILDENAFIL CITRATE
     Indication: Product used for unknown indication
     Dosage: UNK
     Route: 065

REACTIONS (2)
  - Oxygen saturation decreased [Unknown]
  - Ear discomfort [Unknown]
